FAERS Safety Report 7929658-7 (Version None)
Quarter: 2011Q4

REPORT INFORMATION
  Report Type: 
  Country: None (occurrence: None)
  Receive Date: 20111121
  Receipt Date: 20111115
  Transmission Date: 20120403
  Serious: Yes (Other)
  Sender: FDA-Public Use
  Company Number: US-PFIZER INC-2011258390

PATIENT
  Sex: Female

DRUGS (8)
  1. ENALAPRIL [Concomitant]
     Dosage: 20 MG, 1X/DAY
  2. HYDROCHLOROTHIAZIDE [Concomitant]
     Dosage: 12.5 MG, UNK
  3. XALATAN [Suspect]
     Dosage: BOTH EYES AT BEDTIME
     Route: 047
     Dates: start: 20110101
  4. XALATAN [Suspect]
     Indication: GLAUCOMA
     Dosage: BOTH EYES AT BEDTIME
     Route: 047
     Dates: end: 20110701
  5. CLONIDINE [Concomitant]
     Dosage: 0.1 MG, UNK
  6. SIMVASTATIN [Concomitant]
     Dosage: 40 MG, UNK
  7. LATANOPROST [Suspect]
     Indication: GLAUCOMA
     Dosage: UNK, 1X/DAY
     Route: 047
     Dates: start: 20110701, end: 20110913
  8. ATENOLOL [Concomitant]
     Dosage: 50 MG, 1X/DAY

REACTIONS (2)
  - DRUG INEFFECTIVE [None]
  - INTRAOCULAR PRESSURE INCREASED [None]
